FAERS Safety Report 24868029 (Version 2)
Quarter: 2025Q1

REPORT INFORMATION
  Report Type: Report from Study
  Country: US (occurrence: US)
  Receive Date: 20250121
  Receipt Date: 20250203
  Transmission Date: 20250409
  Serious: No
  Sender: MERCK
  Company Number: US-009507513-2501USA002019

PATIENT
  Age: 40 Year
  Sex: Female
  Weight: 65.76 kg

DRUGS (6)
  1. SOTATERCEPT [Suspect]
     Active Substance: SOTATERCEPT
     Indication: Pulmonary arterial hypertension
     Dosage: 0.9 MILLILITER, Q3W
     Route: 058
     Dates: start: 20241219
  2. WINREVAIR [Suspect]
     Active Substance: SOTATERCEPT-CSRK
     Indication: Pulmonary arterial hypertension
     Dosage: 0.9 MILLILITER, EVERY 3 WEEKS
     Route: 058
     Dates: start: 202412
  3. REMODULIN [Suspect]
     Active Substance: TREPROSTINIL
     Indication: Pulmonary arterial hypertension
     Route: 041
     Dates: start: 202408, end: 2024
  4. REMODULIN [Suspect]
     Active Substance: TREPROSTINIL
     Route: 041
     Dates: start: 2024
  5. ADEMPAS [Concomitant]
     Active Substance: RIOCIGUAT
  6. TYLENOL [Concomitant]
     Active Substance: ACETAMINOPHEN

REACTIONS (4)
  - Headache [Recovering/Resolving]
  - Dizziness [Recovering/Resolving]
  - Diarrhoea [Unknown]
  - Increased tendency to bruise [Unknown]

NARRATIVE: CASE EVENT DATE: 20241219
